FAERS Safety Report 5247492-6 (Version None)
Quarter: 2007Q1

REPORT INFORMATION
  Report Type: 
  Country: None (occurrence: None)
  Receive Date: 20070216
  Receipt Date: 20070208
  Transmission Date: 20070707
  Serious: Yes (Hospitalization)
  Sender: FDA-Public Use
  Company Number: 231088K07USA

PATIENT
  Age: 36 Year
  Sex: Male
  Weight: 57.6068 kg

DRUGS (3)
  1. REBIF [Suspect]
     Indication: MULTIPLE SCLEROSIS
     Dosage: 44 MCG, 3 IN 1 WEEKS, SUBCUTANEOUS
     Route: 058
     Dates: start: 20060914
  2. ATENOLOL [Concomitant]
  3. VICODIN [Concomitant]

REACTIONS (1)
  - DEEP VEIN THROMBOSIS [None]
